FAERS Safety Report 24135326 (Version 1)
Quarter: 2024Q3

REPORT INFORMATION
  Report Type: Spontaneous
  Country: US (occurrence: US)
  Receive Date: 20240725
  Receipt Date: 20240725
  Transmission Date: 20241017
  Serious: No
  Sender: CSL BEHRING
  Company Number: US-BEH-2024176213

PATIENT
  Sex: Female

DRUGS (3)
  1. HUMATE-P [Suspect]
     Active Substance: HUMAN COAGULATION FACTOR VIII/VON WILLEBRAND FACTOR COMPLEX
     Indication: Abnormal uterine bleeding
     Dosage: 2800 RCOF UNITS, PRN
     Route: 065
     Dates: start: 201609
  2. HUMATE-P [Suspect]
     Active Substance: HUMAN COAGULATION FACTOR VIII/VON WILLEBRAND FACTOR COMPLEX
     Indication: Vaginal haemorrhage
     Dosage: 2800 RCOF UNITS, PRN
     Route: 042
     Dates: start: 201609
  3. HUMATE-P [Suspect]
     Active Substance: HUMAN COAGULATION FACTOR VIII/VON WILLEBRAND FACTOR COMPLEX
     Indication: Coagulation test abnormal

REACTIONS (2)
  - Dehydration [Unknown]
  - Maternal exposure during pregnancy [Unknown]
